FAERS Safety Report 13884501 (Version 1)
Quarter: 2017Q3

REPORT INFORMATION
  Report Type: Report from Study
  Country: US (occurrence: US)
  Receive Date: 20170821
  Receipt Date: 20170821
  Transmission Date: 20171127
  Serious: No
  Sender: FDA-Public Use
  Company Number: US-SWEDISH ORPHAN INTERNATIONAL AB-2016US0529

PATIENT
  Age: 16 Year
  Sex: Male

DRUGS (1)
  1. KINERET [Suspect]
     Active Substance: ANAKINRA
     Indication: JUVENILE IDIOPATHIC ARTHRITIS
     Dates: start: 20160702

REACTIONS (2)
  - Skin sensitisation [Unknown]
  - Rash macular [Unknown]

NARRATIVE: CASE EVENT DATE: 20160708
